FAERS Safety Report 13531613 (Version 1)
Quarter: 2017Q2

REPORT INFORMATION
  Report Type: Spontaneous
  Country: US (occurrence: US)
  Receive Date: 20170509
  Receipt Date: 20170509
  Transmission Date: 20170830
  Serious: Yes (Hospitalization)
  Sender: FDA-Public Use
  Company Number: None

PATIENT
  Age: 71 Year
  Sex: Female

DRUGS (1)
  1. REVLIMID [Suspect]
     Active Substance: LENALIDOMIDE
     Indication: PLASMA CELL MYELOMA
     Route: 048
     Dates: start: 20170405

REACTIONS (7)
  - Pyrexia [None]
  - Nasal obstruction [None]
  - Sepsis [None]
  - Tachypnoea [None]
  - Oropharyngeal pain [None]
  - Staphylococcal infection [None]
  - Rhinorrhoea [None]

NARRATIVE: CASE EVENT DATE: 20170416
